FAERS Safety Report 4880815-6 (Version None)
Quarter: 2006Q1

REPORT INFORMATION
  Report Type: 
  Country: None (occurrence: None)
  Receive Date: 20060110
  Receipt Date: 20050901
  Transmission Date: 20060701
  Serious: Yes (Other)
  Sender: FDA-Public Use
  Company Number: HQWYE335909SEP05

PATIENT
  Sex: Female

DRUGS (7)
  1. ETHAMBUTOL TABLET [Suspect]
     Indication: TUBERCULOSIS
     Dosage: 047
  2. FOSAMAX [Concomitant]
  3. HYDROLAZINE [Concomitant]
  4. RIFAMPICIN [Concomitant]
  5. LISINOPRIL [Concomitant]
  6. ATIVAN [Concomitant]
  7. LEVAQUIN [Concomitant]

REACTIONS (1)
  - RASH PRURITIC [None]
